FAERS Safety Report 6474928-5 (Version None)
Quarter: 2009Q4

REPORT INFORMATION
  Report Type: 
  Country: None (occurrence: None)
  Receive Date: 20091204
  Receipt Date: 20091124
  Transmission Date: 20100525
  Serious: Yes (Other)
  Sender: FDA-Public Use
  Company Number: IN-WATSON-2009-10119

PATIENT
  Age: 30 Year
  Sex: Female

DRUGS (5)
  1. ETOPOSIDE [Suspect]
     Indication: CHORIOCARCINOMA
     Dosage: UNK
  2. METHOTREXATE [Suspect]
     Indication: CHORIOCARCINOMA
     Dosage: UNK
  3. CYCLOPHOSPHAMIDE [Suspect]
     Indication: CHORIOCARCINOMA
     Dosage: UNK
  4. VINCRISTINE [Suspect]
     Indication: CHORIOCARCINOMA
     Dosage: UNK
  5. ACTINOMYCIN D [Suspect]
     Indication: CHORIOCARCINOMA

REACTIONS (1)
  - THROMBOTIC CEREBRAL INFARCTION [None]
